FAERS Safety Report 6933636-4 (Version None)
Quarter: 2010Q3

REPORT INFORMATION
  Report Type: 
  Country: None (occurrence: None)
  Receive Date: 20100820
  Receipt Date: 20100810
  Transmission Date: 20110219
  Serious: Yes (Life-Threatening, Other)
  Sender: FDA-Public Use
  Company Number: TR-SANOFI-AVENTIS-2010SA048801

PATIENT
  Age: 13 Year
  Sex: Male

DRUGS (7)
  1. FLUDARABINE PHOSPHATE [Suspect]
     Dosage: 4 DAYS, TOTAL DOSE OF 120MG/M2
     Route: 048
  2. FLUDARABINE PHOSPHATE [Suspect]
     Dosage: 4 DAYS, TOTAL DOSE OF 120MG/M2
     Route: 048
  3. CYCLOPHOSPHAMIDE [Suspect]
     Route: 065
  4. CYCLOPHOSPHAMIDE [Suspect]
     Route: 065
  5. ANTI-THYMOCYTE GLOBULIN NOS [Suspect]
     Route: 065
  6. ANTI-THYMOCYTE GLOBULIN NOS [Suspect]
     Route: 065
  7. CYCLOSPORINE [Suspect]
     Indication: PROPHYLAXIS AGAINST GRAFT VERSUS HOST DISEASE
     Route: 065

REACTIONS (6)
  - ACUTE RESPIRATORY DISTRESS SYNDROME [None]
  - HYPERSENSITIVITY [None]
  - PNEUMONIA CYTOMEGALOVIRAL [None]
  - PULMONARY HAEMORRHAGE [None]
  - THROMBOTIC MICROANGIOPATHY [None]
  - TRANSPLANT FAILURE [None]
